FAERS Safety Report 23884437 (Version 1)
Quarter: 2024Q2

REPORT INFORMATION
  Report Type: Spontaneous
  Country: US (occurrence: US)
  Receive Date: 20240522
  Receipt Date: 20240522
  Transmission Date: 20240716
  Serious: Yes (Hospitalization)
  Sender: FDA-Public Use
  Company Number: US-BAYER-2024A074040

PATIENT
  Age: 79 Year
  Sex: Female

DRUGS (2)
  1. ULTRAVIST [Suspect]
     Active Substance: IOPROMIDE
     Indication: Nephrostomy
     Dosage: 90 ML, ONCE
     Route: 042
     Dates: start: 20160328, end: 20160328
  2. CORTIZONE 10 [Concomitant]
     Active Substance: HYDROCORTISONE

REACTIONS (6)
  - Dyspnoea [None]
  - Pharyngeal swelling [None]
  - Burning sensation [None]
  - Tinnitus [None]
  - Anxiety [None]
  - Contrast media allergy [None]

NARRATIVE: CASE EVENT DATE: 20160328
